FAERS Safety Report 7572854-1 (Version None)
Quarter: 2011Q2

REPORT INFORMATION
  Report Type: 
  Country: None (occurrence: None)
  Receive Date: 20110627
  Receipt Date: 20110613
  Transmission Date: 20111010
  Serious: Yes (Other)
  Sender: FDA-Public Use
  Company Number: MX-ELI_LILLY_AND_COMPANY-MX201104002625

PATIENT
  Age: 64 Year
  Sex: Female
  Weight: 80 kg

DRUGS (4)
  1. ATORVASTATIN [Concomitant]
     Indication: BLOOD CHOLESTEROL INCREASED
     Dosage: UNK, UNKNOWN
  2. BEZAFIBRATE [Concomitant]
     Indication: BLOOD CHOLESTEROL INCREASED
     Dosage: UNK, UNKNOWN
  3. OMEPRAZOLE [Concomitant]
     Indication: GASTRITIS
     Dosage: UNK, UNKNOWN
  4. CYMBALTA [Suspect]
     Indication: BACK PAIN
     Dosage: 60 MG, EACH EVENING
     Dates: start: 20100401

REACTIONS (17)
  - ASTHENIA [None]
  - GENERALISED OEDEMA [None]
  - SCRATCH [None]
  - BLOOD CREATININE INCREASED [None]
  - MUSCLE SPASMS [None]
  - EPILEPSY [None]
  - COAGULOPATHY [None]
  - HYPERTENSION [None]
  - ARTHRALGIA [None]
  - BLOOD CHOLESTEROL INCREASED [None]
  - TRANSAMINASES INCREASED [None]
  - BLOOD GLUCOSE INCREASED [None]
  - BLOOD UREA INCREASED [None]
  - BLOOD TRIGLYCERIDES INCREASED [None]
  - HAEMORRHAGE [None]
  - PYREXIA [None]
  - BLOOD POTASSIUM INCREASED [None]
